FAERS Safety Report 23908426 (Version 1)
Quarter: 2024Q2

REPORT INFORMATION
  Report Type: Spontaneous
  Country: HR (occurrence: HR)
  Receive Date: 20240528
  Receipt Date: 20240528
  Transmission Date: 20240716
  Serious: Yes (Other)
  Sender: FDA-Public Use
  Company Number: HR-BAYER-2024A074864

PATIENT
  Age: 69 Year
  Sex: Male
  Weight: 88 kg

DRUGS (11)
  1. FINERENONE [Suspect]
     Active Substance: FINERENONE
     Indication: Chronic kidney disease
  2. TRANDOLAPRIL [Concomitant]
     Active Substance: TRANDOLAPRIL
     Dosage: 0.5 MG, QD
  3. MOXONIDINE [Concomitant]
     Active Substance: MOXONIDINE
     Dosage: 0.2 MG, BID
  4. LERCANIDIPINE HYDROCHLORIDE [Concomitant]
     Active Substance: LERCANIDIPINE HYDROCHLORIDE
     Dosage: 20 MG, QD
  5. ATORVASTATIN [Concomitant]
     Active Substance: ATORVASTATIN
     Dosage: 20 MG, QD
  6. URAPIDIL [Concomitant]
     Active Substance: URAPIDIL
  7. CHOLECALCIFEROL [Concomitant]
     Active Substance: CHOLECALCIFEROL
  8. TRESIBA [Concomitant]
     Active Substance: INSULIN DEGLUDEC
  9. NOVORAPID [Concomitant]
     Active Substance: INSULIN ASPART
  10. DAPAGLIFLOZIN [Concomitant]
     Active Substance: DAPAGLIFLOZIN
     Dosage: 10 MG, QD
  11. GLUCERNA [Concomitant]
     Active Substance: AMINO ACIDS\DEXTROSE\ELECTROLYTES NOS\SOYBEAN OIL\VITAMINS

REACTIONS (10)
  - Eosinophil count increased [None]
  - Blood creatinine increased [None]
  - Blood potassium increased [None]
  - Renal cyst [None]
  - Diabetic nephropathy [None]
  - Hodgkin^s disease nodular sclerosis [None]
  - Cardiac failure chronic [None]
  - Cyanosis [None]
  - Dyspnoea [None]
  - Non-pitting oedema [None]

NARRATIVE: CASE EVENT DATE: 20220101
